FAERS Safety Report 16659735 (Version 1)
Quarter: 2019Q3

REPORT INFORMATION
  Report Type: Spontaneous
  Country: GB (occurrence: GB)
  Receive Date: 20190802
  Receipt Date: 20190802
  Transmission Date: 20191004
  Serious: Yes (Life-Threatening)
  Sender: FDA-Public Use
  Company Number: GB-ACCORD-149916

PATIENT
  Age: 75 Year
  Sex: Male
  Weight: 67 kg

DRUGS (6)
  1. ATORVASTATIN [Concomitant]
     Active Substance: ATORVASTATIN
     Dates: start: 20190311
  2. RAMIPRIL. [Concomitant]
     Active Substance: RAMIPRIL
     Dosage: MORNING
     Dates: start: 20180423, end: 20190610
  3. RANITIDINE. [Concomitant]
     Active Substance: RANITIDINE
     Dosage: STARTED BY UCL HOSPITAL
     Dates: start: 20190610
  4. CLOPIDOGREL [Suspect]
     Active Substance: CLOPIDOGREL BISULFATE
     Indication: PRODUCT USED FOR UNKNOWN INDICATION
     Dates: start: 20190521, end: 20190610
  5. FELODIPINE. [Concomitant]
     Active Substance: FELODIPINE
     Dates: start: 20181018
  6. FOLIC ACID. [Concomitant]
     Active Substance: FOLIC ACID
     Dosage: STARTED BY UCL HOSPITAL
     Dates: start: 20190610

REACTIONS (2)
  - Influenza like illness [Unknown]
  - Thrombotic thrombocytopenic purpura [Recovering/Resolving]

NARRATIVE: CASE EVENT DATE: 20190524
